FAERS Safety Report 12117758 (Version 1)
Quarter: 2016Q1

REPORT INFORMATION
  Report Type: Spontaneous
  Country: US (occurrence: US)
  Receive Date: 20160226
  Receipt Date: 20160226
  Transmission Date: 20160526
  Serious: Yes (Death, Hospitalization, Other)
  Sender: FDA-Public Use
  Company Number: US-PFIZER INC-2016104720

PATIENT
  Age: 56 Year
  Sex: Male
  Weight: 105 kg

DRUGS (1)
  1. LIPITOR [Suspect]
     Active Substance: ATORVASTATIN CALCIUM
     Dosage: UNK
     Dates: start: 2005, end: 2010

REACTIONS (6)
  - Seizure [Unknown]
  - Pulmonary oedema [Unknown]
  - Cardiac arrest [Unknown]
  - Death [Fatal]
  - Cerebrovascular accident [Unknown]
  - Diabetes mellitus [Unknown]

NARRATIVE: CASE EVENT DATE: 201011
